FAERS Safety Report 20407744 (Version 3)
Quarter: 2022Q1

REPORT INFORMATION
  Report Type: Report from Study
  Country: ES (occurrence: ES)
  Receive Date: 20220131
  Receipt Date: 20220210
  Transmission Date: 20220423
  Serious: Yes (Life-Threatening, Other)
  Sender: FDA-Public Use
  Company Number: ES-ABBVIE-22K-144-4256351-00

PATIENT
  Age: 62 Year
  Sex: Female

DRUGS (2)
  1. CARBIDOPA\LEVODOPA [Suspect]
     Active Substance: CARBIDOPA\LEVODOPA
     Indication: Parkinson^s disease
     Route: 050
     Dates: start: 20220126, end: 20220127
  2. CARBIDOPA\LEVODOPA [Suspect]
     Active Substance: CARBIDOPA\LEVODOPA
     Route: 050
     Dates: start: 202201

REACTIONS (9)
  - Pneumoperitoneum [Recovered/Resolved]
  - Abdominal pain [Recovered/Resolved]
  - Hypotension [Recovered/Resolved]
  - Gastric dilatation [Recovered/Resolved]
  - Dyspnoea [Recovered/Resolved]
  - Arthropathy [Unknown]
  - Perforation [Unknown]
  - Stoma site discharge [Unknown]
  - Gastric dilatation [Unknown]

NARRATIVE: CASE EVENT DATE: 20220101
